FAERS Safety Report 8521009-2 (Version None)
Quarter: 2012Q3

REPORT INFORMATION
  Report Type: 
  Country: None (occurrence: None)
  Receive Date: 20120719
  Receipt Date: 20120711
  Transmission Date: 20120928
  Serious: Yes (Hospitalization, Other)
  Sender: FDA-Public Use
  Company Number: FR-ASTRAZENECA-2012SE48382

PATIENT
  Age: 18549 Day
  Sex: Male

DRUGS (6)
  1. GLIMEPIRIDE [Concomitant]
     Indication: TYPE 2 DIABETES MELLITUS
     Route: 048
  2. LEPTICUR [Concomitant]
     Route: 048
     Dates: start: 20120525
  3. TERCIAN [Suspect]
     Route: 048
     Dates: end: 20120522
  4. QUETIAPINE FUMARATE [Suspect]
     Route: 048
     Dates: start: 20120525
  5. QUETIAPINE FUMARATE [Suspect]
     Route: 048
     Dates: start: 20120524, end: 20120524
  6. TERCIAN [Suspect]
     Dosage: 50 DROPS IN THE MORNING, 50 DROPS AT MIDDAY AND 50 DROPS AS REQUIRED 25 MG
     Route: 048
     Dates: start: 20120523, end: 20120531

REACTIONS (7)
  - NEUROLEPTIC MALIGNANT SYNDROME [None]
  - MYCOBACTERIUM TEST POSITIVE [None]
  - OEDEMA PERIPHERAL [None]
  - BLOOD CREATINE PHOSPHOKINASE INCREASED [None]
  - FIBRIN D DIMER INCREASED [None]
  - URINARY RETENTION [None]
  - CONSTIPATION [None]
